FAERS Safety Report 12792776 (Version 1)
Quarter: 2016Q3

REPORT INFORMATION
  Report Type: Spontaneous
  Country: JP (occurrence: JP)
  Receive Date: 20160929
  Receipt Date: 20160929
  Transmission Date: 20161109
  Serious: Yes (Life-Threatening, Other)
  Sender: FDA-Public Use
  Company Number: JP-OTSUKA-JP-2011-11747

PATIENT
  Age: 58 Year
  Sex: Male
  Weight: 60 kg

DRUGS (8)
  1. BAYASPIRIN [Suspect]
     Active Substance: ASPIRIN
     Indication: CEREBRAL INFARCTION
     Dosage: UNK
     Route: 048
     Dates: start: 20110415
  2. BAYASPIRIN [Suspect]
     Active Substance: ASPIRIN
     Dosage: 100 MG, QD
     Route: 048
     Dates: start: 201104, end: 20110429
  3. GASTER [Concomitant]
     Active Substance: FAMOTIDINE
     Indication: PROPHYLAXIS AGAINST GASTROINTESTINAL ULCER
     Dosage: 20 MG, BID
     Route: 048
     Dates: start: 201104, end: 20110429
  4. MIYA-BM [Concomitant]
     Active Substance: CLOSTRIDIUM BUTYRICUM SPORES STRAIN M-55
     Indication: DYSBACTERIOSIS
     Dosage: 1 DF, TID
     Route: 048
     Dates: start: 20110424, end: 20110429
  5. BLOPRESS [Concomitant]
     Active Substance: CANDESARTAN CILEXETIL
     Indication: HYPERTENSION
     Dosage: 4 MG, QD
     Route: 048
     Dates: start: 20110424, end: 20110429
  6. LOW MOLECULAR DEXTRAN [Concomitant]
     Indication: CEREBRAL INFARCTION
     Dosage: 25 G, BID
     Route: 051
     Dates: start: 20110425, end: 20110429
  7. CATACLOT (OZAGREL SODIUM) [Suspect]
     Active Substance: OZAGREL SODIUM
     Indication: CEREBRAL INFARCTION
     Dosage: 40 MG, BID
     Route: 041
     Dates: start: 20110425, end: 20110429
  8. PLETAAL OD TABLETS 100MG [Suspect]
     Active Substance: CILOSTAZOL
     Indication: CEREBRAL INFARCTION
     Dosage: 100 MG, BID
     Route: 048
     Dates: start: 20110427, end: 20110427

REACTIONS (5)
  - Artery dissection [Recovering/Resolving]
  - Cerebral haemorrhage [Recovering/Resolving]
  - Subarachnoid haemorrhage [Recovering/Resolving]
  - Nausea [Unknown]
  - Headache [Recovering/Resolving]

NARRATIVE: CASE EVENT DATE: 20110427
